FAERS Safety Report 20783806 (Version 1)
Quarter: 2022Q2

REPORT INFORMATION
  Report Type: Spontaneous
  Country: RU (occurrence: RU)
  Receive Date: 20220504
  Receipt Date: 20220504
  Transmission Date: 20220720
  Serious: Yes (Hospitalization)
  Sender: FDA-Public Use
  Company Number: RU-BAYER-2022P001497

PATIENT
  Age: 48 Year
  Sex: Female

DRUGS (2)
  1. DIENOGEST\ESTRADIOL VALERATE [Suspect]
     Active Substance: DIENOGEST\ESTRADIOL VALERATE
     Indication: Contraception
     Dosage: 1 TABLET ONCE A DAY FOR 26 DAYS, PLACEBO FOR 2 DAYS
     Route: 048
     Dates: start: 2018, end: 20220427
  2. DIENOGEST\ESTRADIOL VALERATE [Suspect]
     Active Substance: DIENOGEST\ESTRADIOL VALERATE
     Indication: Heavy menstrual bleeding

REACTIONS (4)
  - Ovarian adenoma [None]
  - Ovarian cancer [None]
  - Ascites [None]
  - Metastases to ovary [None]

NARRATIVE: CASE EVENT DATE: 20220427
